FAERS Safety Report 25270997 (Version 1)
Quarter: 2025Q2

REPORT INFORMATION
  Report Type: Report from Study
  Country: US (occurrence: US)
  Receive Date: 20250506
  Receipt Date: 20250506
  Transmission Date: 20250717
  Serious: Yes (Hospitalization)
  Sender: BOEHRINGER INGELHEIM
  Company Number: US-BoehringerIngelheim-2025-BI-003933

PATIENT
  Age: 11 Year
  Sex: Male
  Weight: 33.5 kg

DRUGS (22)
  1. PRADAXA [Suspect]
     Active Substance: DABIGATRAN ETEXILATE MESYLATE
     Indication: Embolism venous
     Dates: start: 20240827, end: 20250214
  2. ALTEPLASE [Concomitant]
     Active Substance: ALTEPLASE
     Indication: Thrombosis
     Dates: start: 20250215, end: 20250215
  3. HEPARIN [Concomitant]
     Active Substance: HEPARIN SODIUM
     Indication: Coagulopathy
     Dates: start: 2025, end: 2025
  4. SENNOSIDES [Concomitant]
     Active Substance: SENNOSIDES
     Indication: Constipation
  5. MERCAPTOPURINE [Concomitant]
     Active Substance: MERCAPTOPURINE
     Indication: Neutrophil count increased
  6. ONDANSETRON [Concomitant]
     Active Substance: ONDANSETRON
     Indication: Nausea
     Dates: start: 20250321, end: 20250409
  7. BACTRIM [Concomitant]
     Active Substance: SULFAMETHOXAZOLE\TRIMETHOPRIM
     Indication: Prophylaxis
  8. PREDNISONE [Concomitant]
     Active Substance: PREDNISONE
     Indication: Adrenal insufficiency
     Dosage: 5MG/2MG
     Dates: start: 202408
  9. PREDNISONE [Concomitant]
     Active Substance: PREDNISONE
     Indication: Inflammation
     Dates: start: 202408, end: 20250124
  10. ACETAZOLAMIDE [Concomitant]
     Active Substance: ACETAZOLAMIDE
     Indication: Headache
  11. ASPIRIN [Concomitant]
     Active Substance: ASPIRIN
     Indication: Pain
     Dates: start: 20240920, end: 20241010
  12. CITRIC ACID [Concomitant]
     Active Substance: CITRIC ACID MONOHYDRATE
     Indication: Prophylaxis
  13. BIVALIRUDIN [Concomitant]
     Active Substance: BIVALIRUDIN
     Indication: Product used for unknown indication
     Dates: start: 20250214, end: 20250222
  14. Miralax Oral  Powder Product [Concomitant]
     Indication: Constipation
     Dates: start: 202412, end: 20250104
  15. Miralax Oral  Powder Product [Concomitant]
  16. FAMOTIDINE [Concomitant]
     Active Substance: FAMOTIDINE
     Indication: Prophylaxis
  17. AMOXICILLIN [Concomitant]
     Active Substance: AMOXICILLIN
     Dates: start: 20250106, end: 20250106
  18. AMOXICILLIN [Concomitant]
     Active Substance: AMOXICILLIN
     Dates: start: 20250106, end: 20250111
  19. ACETAMINOPHEN [Concomitant]
     Active Substance: ACETAMINOPHEN
     Indication: Pain
  20. Hiya Kids  Pediatric  Multivitamin [Concomitant]
     Indication: Supplementation therapy
  21. SENNOSIDES [Concomitant]
     Active Substance: SENNOSIDES
  22. ENOXAPARIN [Concomitant]
     Active Substance: ENOXAPARIN

REACTIONS (6)
  - Chest pain [Recovered/Resolved]
  - Tricuspid valve incompetence [Recovered/Resolved]
  - Pyrexia [Recovered/Resolved]
  - Atrial thrombosis [Recovered/Resolved]
  - Cardiac ventricular thrombosis [Recovered/Resolved]
  - Subacute endocarditis [Recovered/Resolved]

NARRATIVE: CASE EVENT DATE: 20241010
